FAERS Safety Report 18766175 (Version 6)
Quarter: 2021Q2

REPORT INFORMATION
  Report Type: Report from Study
  Country: None (occurrence: ES)
  Receive Date: 20210120
  Receipt Date: 20210515
  Transmission Date: 20210717
  Serious: Yes (Other)
  Sender: FDA-Public Use
  Company Number: ES-ABBVIE-20K-144-3695746-00

PATIENT
  Age: 80 Year
  Sex: Male

DRUGS (4)
  1. DUODOPA [Suspect]
     Active Substance: CARBIDOPA\LEVODOPA
     Indication: PARKINSON^S DISEASE
     Route: 050
     Dates: start: 20110602
  2. NEUPRO [Concomitant]
     Active Substance: ROTIGOTINE
     Indication: DYSKINESIA
  3. DUODOPA [Suspect]
     Active Substance: CARBIDOPA\LEVODOPA
  4. AMANTADINE. [Suspect]
     Active Substance: AMANTADINE HYDROCHLORIDE
     Indication: PRODUCT USED FOR UNKNOWN INDICATION
     Route: 065
     Dates: start: 20201217, end: 202103

REACTIONS (12)
  - Mobility decreased [Recovered/Resolved]
  - Device leakage [Unknown]
  - Wound [Recovering/Resolving]
  - Dyskinesia [Recovered/Resolved]
  - Embedded device [Unknown]
  - Somnolence [Recovered/Resolved]
  - Medical device pain [Recovered/Resolved]
  - Stoma site haemorrhage [Unknown]
  - Unintentional medical device removal [Unknown]
  - Fall [Recovered/Resolved]
  - Embedded device [Recovered/Resolved]
  - Device issue [Recovered/Resolved]

NARRATIVE: CASE EVENT DATE: 202012
